FAERS Safety Report 6471092-3 (Version None)
Quarter: 2009Q4

REPORT INFORMATION
  Report Type: 
  Country: None (occurrence: None)
  Receive Date: 20091203
  Receipt Date: 20091124
  Transmission Date: 20100525
  Serious: Yes (Hospitalization)
  Sender: FDA-Public Use
  Company Number: PHHY2009MX40292

PATIENT
  Sex: Female
  Weight: 49 kg

DRUGS (4)
  1. DIOVAN HCT [Suspect]
     Indication: HYPERTENSION
     Dosage: 1 TABLET (80/12.5MG) PER DAY
     Route: 048
     Dates: start: 20060301
  2. DIOVAN HCT [Suspect]
     Dosage: UNK
  3. ASPIRIN [Concomitant]
     Indication: HYPERTENSION
  4. CONCOR [Concomitant]
     Indication: HYPERTENSION

REACTIONS (2)
  - BLOOD PRESSURE ABNORMAL [None]
  - HEART VALVE OPERATION [None]
